FAERS Safety Report 7908362-5 (Version None)
Quarter: 2011Q4

REPORT INFORMATION
  Report Type: 
  Country: None (occurrence: None)
  Receive Date: 20111111
  Receipt Date: 20111031
  Transmission Date: 20120403
  Serious: Yes (Hospitalization)
  Sender: FDA-Public Use
  Company Number: US-JNJFOC-20111103889

PATIENT

DRUGS (4)
  1. REMICADE [Suspect]
     Dosage: 31 INFUSIONS AFTER TREAT REGISTRY
     Route: 042
     Dates: start: 20020117, end: 20070601
  2. METHOTREXATE [Concomitant]
  3. REMICADE [Suspect]
     Indication: CROHN'S DISEASE
     Dosage: 6 INFUSIONS PRIOR TO BASE LINE
     Route: 042
  4. ASACOL [Concomitant]

REACTIONS (1)
  - CEREBROVASCULAR ACCIDENT [None]
